FAERS Safety Report 6266917-0 (Version None)
Quarter: 2009Q3

REPORT INFORMATION
  Report Type: 
  Country: None (occurrence: None)
  Receive Date: 20090714
  Receipt Date: 20090630
  Transmission Date: 20100115
  Serious: Yes (Hospitalization, Other)
  Sender: FDA-Public Use
  Company Number: PHEH2009US06918

PATIENT
  Sex: Female

DRUGS (5)
  1. FEMARA [Suspect]
     Dosage: UNK
     Dates: start: 20080801
  2. DILANTIN                                /AUS/ [Concomitant]
  3. KEPPRA [Concomitant]
  4. BENICAR HCT [Concomitant]
  5. ASPIRIN [Concomitant]
     Dosage: 81 MG

REACTIONS (5)
  - ARTHRALGIA [None]
  - BONE PAIN [None]
  - CONVULSION [None]
  - HYPOAESTHESIA [None]
  - NECK PAIN [None]
